FAERS Safety Report 5773370-X (Version None)
Quarter: 2008Q2

REPORT INFORMATION
  Report Type: 
  Country: None (occurrence: None)
  Receive Date: 20080616
  Receipt Date: 20080603
  Transmission Date: 20081010
  Serious: Yes (Other)
  Sender: FDA-Public Use
  Company Number: US-JNJFOC-20080601569

PATIENT
  Sex: Male
  Weight: 87.54 kg

DRUGS (11)
  1. INFLIXIMAB [Suspect]
     Route: 042
  2. INFLIXIMAB [Suspect]
     Route: 042
  3. INFLIXIMAB [Suspect]
     Route: 042
  4. INFLIXIMAB [Suspect]
     Indication: CROHN'S DISEASE
     Route: 042
  5. ANTIBIOTICS [Concomitant]
     Indication: CROHN'S DISEASE
  6. ANTIHISTAMINES [Concomitant]
  7. ANTIHISTAMINES [Concomitant]
  8. ANTIHISTAMINES [Concomitant]
  9. ANTIHISTAMINES [Concomitant]
     Indication: PREMEDICATION
  10. ACETAMINOPHEN [Concomitant]
  11. ACETAMINOPHEN [Concomitant]
     Indication: PREMEDICATION

REACTIONS (1)
  - TUBERCULOSIS [None]
